FAERS Safety Report 8561036-2 (Version None)
Quarter: 2012Q3

REPORT INFORMATION
  Report Type: 
  Country: None (occurrence: None)
  Receive Date: 20120802
  Receipt Date: 20110901
  Transmission Date: 20120928
  Serious: Yes (Other)
  Sender: FDA-Public Use
  Company Number: US-BRISTOL-MYERS SQUIBB COMPANY-15994585

PATIENT
  Sex: Male

DRUGS (1)
  1. REYATAZ [Suspect]

REACTIONS (1)
  - CHOLELITHIASIS [None]
